FAERS Safety Report 19024515 (Version 5)
Quarter: 2023Q2

REPORT INFORMATION
  Report Type: Report from Study
  Country: JP (occurrence: JP)
  Receive Date: 20210317
  Receipt Date: 20230613
  Transmission Date: 20230722
  Serious: Yes (Hospitalization, Other)
  Sender: FDA-Public Use
  Company Number: JP-CELLTRION INC.-2020JP026468

PATIENT

DRUGS (8)
  1. INFLIXIMAB-DYYB [Suspect]
     Active Substance: INFLIXIMAB-DYYB
     Indication: Crohn^s disease
     Dosage: 290 MILLIGRAM (PATIENT WEIGHT OF 57.6 KG)
     Route: 041
     Dates: start: 20181105, end: 20181105
  2. INFLIXIMAB-DYYB [Suspect]
     Active Substance: INFLIXIMAB-DYYB
     Dosage: 295 MILLIGRAM (PATIENT WEIGHT OF 59.4 KG)
     Route: 041
     Dates: start: 20181224, end: 20181224
  3. INFLIXIMAB-DYYB [Suspect]
     Active Substance: INFLIXIMAB-DYYB
     Dosage: 300 MILLIGRAM (PATIENT WEIGHT OF 60.1 KG)
     Route: 041
     Dates: start: 20190218, end: 20190218
  4. INFLIXIMAB-DYYB [Suspect]
     Active Substance: INFLIXIMAB-DYYB
     Dosage: 300 MILLIGRAM (PATIENT WEIGHT OF 59.8 KG)
     Route: 041
     Dates: start: 20190415, end: 20190415
  5. INFLIXIMAB-DYYB [Suspect]
     Active Substance: INFLIXIMAB-DYYB
     Dosage: 320 MILLIGRAM (PATIENT WEIGHT OF 63.8 KG)
     Route: 041
     Dates: start: 20191007, end: 20191007
  6. INFLIXIMAB-DYYB [Suspect]
     Active Substance: INFLIXIMAB-DYYB
     Dosage: 310 MG (PATIENT WEIGHT OF 62.2KG)
     Route: 041
     Dates: start: 20201109, end: 20201109
  7. INFLIXIMAB-DYYB [Suspect]
     Active Substance: INFLIXIMAB-DYYB
     Dosage: 315 MG (PATIENT WEIGHT OF 63 KG)
     Route: 041
     Dates: start: 20211108, end: 20211108
  8. INFLIXIMAB-DYYB [Suspect]
     Active Substance: INFLIXIMAB-DYYB
     Dosage: 320 MG (PATIENT WEIGHT OF 63.7 KG)
     Route: 041
     Dates: start: 20221108, end: 20221108

REACTIONS (9)
  - Uterine myoma expulsion [Recovered/Resolved]
  - Proctalgia [Recovered/Resolved]
  - Proctalgia [Unknown]
  - Irritable bowel syndrome [Recovered/Resolved]
  - Intentional product use issue [Unknown]
  - Overdose [Unknown]
  - Underdose [Unknown]
  - Product use issue [Unknown]
  - Product use issue [Unknown]

NARRATIVE: CASE EVENT DATE: 20190722
